FAERS Safety Report 9972276 (Version 2)
Quarter: 2014Q1

REPORT INFORMATION
  Report Type: Report from Study
  Country: PR (occurrence: PR)
  Receive Date: 20140306
  Receipt Date: 20140306
  Transmission Date: 20141002
  Serious: No
  Sender: FDA-Public Use
  Company Number: PR-ABBVIE-13P-131-1039729-00

PATIENT
  Sex: Female

DRUGS (12)
  1. HUMIRA [Suspect]
     Indication: RHEUMATOID ARTHRITIS
     Route: 058
     Dates: start: 2010, end: 20130115
  2. HUMIRA [Suspect]
     Route: 058
     Dates: start: 20130131, end: 201302
  3. HUMIRA [Suspect]
     Route: 058
     Dates: start: 201302
  4. CATAFLAM [Concomitant]
     Indication: RHEUMATOID ARTHRITIS
     Route: 048
  5. PLAQUENIL [Concomitant]
     Indication: RHEUMATOID ARTHRITIS
     Route: 048
  6. ASPIRIN [Concomitant]
     Indication: ANGIOPATHY
     Route: 048
  7. PREDNISONE [Concomitant]
     Indication: PRODUCT USED FOR UNKNOWN INDICATION
     Route: 048
  8. ULTRACET [Concomitant]
     Indication: RHEUMATOID ARTHRITIS
     Route: 048
  9. ULTRACET [Concomitant]
     Route: 048
  10. UNKNOWN MEDICATION [Concomitant]
     Indication: HYPERTENSION
     Route: 048
  11. VITAMIN C [Concomitant]
     Indication: PRODUCT USED FOR UNKNOWN INDICATION
     Route: 048
  12. INTEGRA PLUS [Concomitant]
     Indication: HAEMOGLOBIN
     Route: 048

REACTIONS (2)
  - Malaise [Unknown]
  - Nasopharyngitis [Recovered/Resolved]
